FAERS Safety Report 8613305-5 (Version None)
Quarter: 2012Q3

REPORT INFORMATION
  Report Type: 
  Country: None (occurrence: None)
  Receive Date: 20120822
  Receipt Date: 20120806
  Transmission Date: 20120928
  Serious: Yes (Hospitalization, Disabling, Other)
  Sender: FDA-Public Use
  Company Number: US-009507513-1202USA04363

PATIENT

DRUGS (1)
  1. FOSAMAX [Suspect]
     Indication: OSTEOPOROSIS
     Dosage: 70 MG, QW
     Route: 048
     Dates: end: 20110101

REACTIONS (6)
  - BLOOD DISORDER [None]
  - COLON CANCER [None]
  - FEMUR FRACTURE [None]
  - ARTHRITIS [None]
  - BACK PAIN [None]
  - ARTHRALGIA [None]
